FAERS Safety Report 11054148 (Version 1)
Quarter: 2015Q2

REPORT INFORMATION
  Report Type: Spontaneous
  Country: AU (occurrence: AU)
  Receive Date: 20150422
  Receipt Date: 20150422
  Transmission Date: 20150821
  Serious: Yes (Other)
  Sender: FDA-Public Use
  Company Number: AU-009507513-1504AUS017512

PATIENT
  Age: 62 Year
  Sex: Female
  Weight: 58 kg

DRUGS (5)
  1. EMEND [Suspect]
     Active Substance: APREPITANT
     Dosage: 165 MG, ONCE EVERY THREE WEEKS
     Route: 048
     Dates: start: 20141218
  2. CYCLOPHOSPHAMIDE. [Suspect]
     Active Substance: CYCLOPHOSPHAMIDE
     Dosage: 970 MG, ONCE EVERY 3 WEEKS
     Route: 042
     Dates: start: 20141218
  3. EPIRUBICIN HYDROCHLORIDE. [Suspect]
     Active Substance: EPIRUBICIN HYDROCHLORIDE
     Dosage: 145 MG, ONCE EVERY 3 WEEKS
     Route: 042
     Dates: start: 20141218
  4. PALONOSETRON HYDROCHLORIDE [Suspect]
     Active Substance: PALONOSETRON HYDROCHLORIDE
     Dosage: 250 MICROGRAM, ONCE EVERY 3 WEEKS
     Route: 042
     Dates: start: 20141218
  5. DEXAMETHASONE. [Suspect]
     Active Substance: DEXAMETHASONE
     Dosage: 8 MG, FREQUENCY: EACH/EVERY
     Route: 042
     Dates: start: 20141218

REACTIONS (3)
  - Oesophageal pain [Recovered/Resolved]
  - Dyspepsia [Recovered/Resolved]
  - Abdominal discomfort [Recovered/Resolved]

NARRATIVE: CASE EVENT DATE: 20150130
